FAERS Safety Report 9512056 (Version 1)
Quarter: 2013Q1

REPORT INFORMATION
  Report Type: Spontaneous
  Country: US (occurrence: None)
  Receive Date: 20130305
  Receipt Date: 20130305
  Transmission Date: 20140127
  Serious: Yes (Other)
  Sender: FDA-Public Use
  Company Number: 163-21880-12050506

PATIENT
  Age: 73 Year
  Sex: Female

DRUGS (3)
  1. REVLIMID ( LENALIDOMIDE) (10 MILLIGRAM, CAPSULES) [Suspect]
     Indication: CHRONIC LYMPHOCYTIC LEUKAEMIA
     Dosage: 21D/28D
     Route: 048
     Dates: start: 201006
  2. WARFARIN (WARFARIN) [Concomitant]
  3. LEVOTHROID (LEVOTHYROXINE SODIUM) [Concomitant]

REACTIONS (1)
  - Neutropenia [None]
